FAERS Safety Report 13867119 (Version 1)
Quarter: 2017Q3

REPORT INFORMATION
  Report Type: Spontaneous
  Country: US (occurrence: None)
  Receive Date: 20170814
  Receipt Date: 20170814
  Transmission Date: 20171127
  Serious: Yes (Other)
  Sender: FDA-Public Use
  Company Number: None

PATIENT
  Age: 45 Year
  Sex: Male
  Weight: 147.7 kg

DRUGS (1)
  1. TIGECYCLINE 50MG FRESENSIUS [Suspect]
     Active Substance: TIGECYCLINE
     Indication: PSOAS ABSCESS
     Route: 042
     Dates: start: 20170805, end: 20170808

REACTIONS (2)
  - Urticaria [None]
  - Angioedema [None]

NARRATIVE: CASE EVENT DATE: 20170806
